FAERS Safety Report 4847910-9 (Version None)
Quarter: 2005Q4

REPORT INFORMATION
  Report Type: 
  Country: None (occurrence: None)
  Receive Date: 20051206
  Receipt Date: 20051122
  Transmission Date: 20060501
  Serious: Yes (Hospitalization)
  Sender: FDA-Public Use
  Company Number: 2005BI017372

PATIENT
  Age: 59 Year
  Sex: Female

DRUGS (2)
  1. AVONEX [Suspect]
     Indication: MULTIPLE SCLEROSIS
     Dosage: 30 UG; QW; IM
     Route: 030
     Dates: start: 19970416
  2. AVONEX [Suspect]
     Indication: MULTIPLE SCLEROSIS
     Dosage: IM
     Route: 030
     Dates: start: 20050101, end: 20050101

REACTIONS (9)
  - ASTHENIA [None]
  - FALL [None]
  - HAEMORRHOID OPERATION [None]
  - HYPOAESTHESIA [None]
  - IMPAIRED HEALING [None]
  - INFLUENZA [None]
  - KNEE ARTHROPLASTY [None]
  - MALAISE [None]
  - TREMOR [None]
